FAERS Safety Report 9272535 (Version 1)
Quarter: 2013Q2

REPORT INFORMATION
  Report Type: Spontaneous
  Country: GB (occurrence: GB)
  Receive Date: 20130506
  Receipt Date: 20130506
  Transmission Date: 20140414
  Serious: Yes (Hospitalization)
  Sender: FDA-Public Use
  Company Number: GB-JNJFOC-2003182922GB

PATIENT
  Age: 57 Year
  Sex: Male

DRUGS (4)
  1. IBUPROFEN [Suspect]
     Route: 048
  2. IBUPROFEN [Suspect]
     Indication: ARTHRITIS
     Dosage: FREQUENCY TEXT: PRN DAILY DOSE TEXT: 200 MILLIGRAM, PRN
     Route: 048
     Dates: end: 20030929
  3. CO-CODAMOL [Concomitant]
     Indication: ARTHRALGIA
     Dosage: FREQUENCY TEXT: PRN DAILY DOSE TEXT: UNK, PRN
     Route: 048
  4. PARACETAMOL [Concomitant]
     Indication: ARTHRALGIA
     Dosage: FREQUENCY TEXT: PRN DAILY DOSE TEXT: UNK, PRN
     Route: 048

REACTIONS (3)
  - Melaena [Not Recovered/Not Resolved]
  - Abdominal pain [Not Recovered/Not Resolved]
  - Lethargy [Not Recovered/Not Resolved]
